FAERS Safety Report 7199111-X (Version None)
Quarter: 2010Q4

REPORT INFORMATION
  Report Type: 
  Country: None (occurrence: None)
  Receive Date: 20101126
  Receipt Date: 20100518
  Transmission Date: 20110411
  Serious: Yes (Other)
  Sender: FDA-Public Use
  Company Number: CIP09000091

PATIENT
  Sex: Female

DRUGS (12)
  1. ACTONEL [Suspect]
     Dosage: 35 MG, 1 /WEEK, ORAL
     Route: 048
     Dates: start: 20020907, end: 20070101
  2. ACTONEL [Suspect]
     Dosage: 5 MG, DALY, ORAL
     Route: 048
     Dates: start: 20010330, end: 20020907
  3. ZOCOR [Concomitant]
  4. ASPIRIN [Concomitant]
  5. BISOPROLOL (BISOPROLOL) [Concomitant]
  6. TOPROL-XL [Concomitant]
  7. VYTORIN [Concomitant]
  8. OSCAL /00108001/ (CALCIUM CARBONATE) [Concomitant]
  9. DIOVAN [Concomitant]
  10. PLAVIX [Concomitant]
  11. AVALIDE [Concomitant]
  12. CEPHALEXIN /00145501/ (CEFALEXIN) [Concomitant]

REACTIONS (18)
  - BONE DENSITY DECREASED [None]
  - DENTAL FISTULA [None]
  - FISTULA DISCHARGE [None]
  - GINGIVAL BLEEDING [None]
  - GINGIVAL INFECTION [None]
  - GINGIVITIS [None]
  - IMPAIRED HEALING [None]
  - JAW DISORDER [None]
  - LOOSE TOOTH [None]
  - OSTEOMYELITIS [None]
  - OSTEONECROSIS OF JAW [None]
  - PAIN IN JAW [None]
  - PARAESTHESIA ORAL [None]
  - PRIMARY SEQUESTRUM [None]
  - SWELLING FACE [None]
  - TOOTH ABSCESS [None]
  - TOOTH EXTRACTION [None]
  - TOOTHACHE [None]
